FAERS Safety Report 9121042 (Version 1)
Quarter: 2013Q1

REPORT INFORMATION
  Report Type: Spontaneous
  Country: GB (occurrence: GB)
  Receive Date: 20130226
  Receipt Date: 20130226
  Transmission Date: 20140127
  Serious: Yes (Hospitalization, Other)
  Sender: FDA-Public Use
  Company Number: GB-TEVA-237082ISR

PATIENT
  Age: 66 Year
  Sex: Female

DRUGS (7)
  1. METHOTREXATE [Suspect]
     Indication: METASTASES TO BREAST
     Route: 037
     Dates: start: 20091216, end: 20091218
  2. METHOTREXATE [Suspect]
     Indication: METASTASES TO MENINGES
     Route: 037
     Dates: start: 20100111
  3. CALCIUM FOLINATE [Concomitant]
     Indication: SALVAGE THERAPY
  4. IBANDRONIC ACID [Concomitant]
     Indication: METASTASES TO BONE
     Dosage: 50 MILLIGRAM DAILY;
     Route: 042
     Dates: start: 20090804
  5. COD-ACAMOL [Concomitant]
     Indication: PRODUCT USED FOR UNKNOWN INDICATION
  6. QUININE [Concomitant]
     Indication: MUSCLE SPASMS
  7. TINZAPARIN [Concomitant]
     Indication: PULMONARY EMBOLISM
     Route: 042

REACTIONS (4)
  - Clostridium difficile colitis [Recovered/Resolved]
  - Eczema asteatotic [Recovered/Resolved]
  - Stomatitis [Recovered/Resolved]
  - Pancytopenia [Recovered/Resolved]
